FAERS Safety Report 9547193 (Version 1)
Quarter: 2013Q3

REPORT INFORMATION
  Report Type: Spontaneous
  Country: GB (occurrence: GB)
  Receive Date: 20130924
  Receipt Date: 20130924
  Transmission Date: 20140515
  Serious: Yes (Other)
  Sender: FDA-Public Use
  Company Number: GB-JNJFOC-20130906636

PATIENT
  Sex: 0

DRUGS (2)
  1. PARACETAMOL [Suspect]
     Route: 065
  2. PARACETAMOL [Suspect]
     Indication: DRUG ABUSE
     Route: 065

REACTIONS (4)
  - Toxicity to various agents [Unknown]
  - Drug abuse [Unknown]
  - Child abuse [Unknown]
  - Poisoning deliberate [Unknown]
